FAERS Safety Report 18675620 (Version 7)
Quarter: 2022Q1

REPORT INFORMATION
  Report Type: Report from Study
  Country: US (occurrence: US)
  Receive Date: 20201229
  Receipt Date: 20220225
  Transmission Date: 20220423
  Serious: Yes (Other)
  Sender: FDA-Public Use
  Company Number: US-NOVARTISPH-NVSC2020US337297

PATIENT
  Sex: Female

DRUGS (2)
  1. KISQALI [Suspect]
     Active Substance: RIBOCICLIB
     Indication: Product used for unknown indication
     Dosage: UNK
     Route: 048
  2. KISQALI [Suspect]
     Active Substance: RIBOCICLIB
     Dosage: 2 PILLS PER DAY
     Route: 048

REACTIONS (22)
  - Intestinal haemorrhage [Unknown]
  - Diabetes mellitus [Unknown]
  - Haemorrhage [Unknown]
  - Pneumonia [Unknown]
  - Blister [Unknown]
  - Pain [Unknown]
  - Nasal dryness [Unknown]
  - Epistaxis [Unknown]
  - Secretion discharge [Unknown]
  - Food aversion [Unknown]
  - Weight decreased [Unknown]
  - Malaise [Unknown]
  - White blood cell count decreased [Unknown]
  - Blood viscosity decreased [Unknown]
  - Visual impairment [Unknown]
  - Skin exfoliation [Unknown]
  - Arthralgia [Unknown]
  - Arthritis [Unknown]
  - Constipation [Unknown]
  - Nausea [Unknown]
  - Vomiting [Unknown]
  - Product supply issue [Unknown]
